FAERS Safety Report 6793835-1 (Version None)
Quarter: 2010Q2

REPORT INFORMATION
  Report Type: 
  Country: None (occurrence: None)
  Receive Date: 20100624
  Receipt Date: 20090607
  Transmission Date: 20101027
  Serious: Yes (Other)
  Sender: FDA-Public Use
  Company Number: US-PFIZER INC-2008155087

PATIENT
  Age: 61 Year
  Sex: Female

DRUGS (5)
  1. GEODON [Suspect]
     Indication: BIPOLAR II DISORDER
     Dosage: 80 MG, 2X/DAY
     Dates: start: 20071219, end: 20080715
  2. GEODON [Suspect]
     Dosage: 80 MG, 2X/DAY
     Dates: end: 20080715
  3. SEROQUEL [Concomitant]
     Dosage: UNK
  4. PRINIVIL [Concomitant]
     Indication: HYPERTENSION
     Dosage: 10 MG, UNK
     Route: 048
  5. KLONOPIN [Concomitant]
     Indication: AGITATION
     Dosage: 0.5 MG, 3X/DAY
     Route: 048

REACTIONS (1)
  - TARDIVE DYSKINESIA [None]
